FAERS Safety Report 9242564 (Version 26)
Quarter: 2019Q4

REPORT INFORMATION
  Report Type: Report from Study
  Country: CA (occurrence: CA)
  Receive Date: 20130419
  Receipt Date: 20191003
  Transmission Date: 20200122
  Serious: Yes (Hospitalization, Other)
  Sender: FDA-Public Use
  Company Number: CA-ROCHE-1179090

PATIENT
  Age: 48 Year
  Sex: Female
  Weight: 63 kg

DRUGS (21)
  1. ACTEMRA [Suspect]
     Active Substance: TOCILIZUMAB
     Route: 042
     Dates: start: 20120126
  2. ACTEMRA [Suspect]
     Active Substance: TOCILIZUMAB
     Route: 042
     Dates: start: 20130509
  3. RITUXAN [Suspect]
     Active Substance: RITUXIMAB
     Indication: RHEUMATOID ARTHRITIS
     Dosage: DAY 1, 15
     Route: 041
     Dates: start: 20150728
  4. CARBOCAL [Concomitant]
     Active Substance: CALCIUM CARBONATE
  5. ACTEMRA [Suspect]
     Active Substance: TOCILIZUMAB
     Route: 042
     Dates: start: 20101026, end: 20140918
  6. LYRICA [Concomitant]
     Active Substance: PREGABALIN
  7. ACTEMRA [Suspect]
     Active Substance: TOCILIZUMAB
     Dosage: DOSE CONTINUED AS 8MG/KG
     Route: 042
     Dates: start: 20111114
  8. ACTEMRA [Suspect]
     Active Substance: TOCILIZUMAB
     Route: 042
     Dates: start: 20120301
  9. FOLIC ACID. [Concomitant]
     Active Substance: FOLIC ACID
  10. PREDNISONE. [Concomitant]
     Active Substance: PREDNISONE
  11. ACTEMRA [Suspect]
     Active Substance: TOCILIZUMAB
     Dosage: DOSE CONTINUED AS 8 MG/KG
     Route: 042
     Dates: start: 20120424
  12. ACTONEL [Concomitant]
     Active Substance: RISEDRONATE SODIUM
  13. ACTEMRA [Suspect]
     Active Substance: TOCILIZUMAB
     Route: 042
     Dates: start: 20130926
  14. METHOTREXATE. [Suspect]
     Active Substance: METHOTREXATE
     Indication: PRODUCT USED FOR UNKNOWN INDICATION
     Route: 065
  15. MOTRIN [Concomitant]
     Active Substance: IBUPROFEN
  16. ACTEMRA [Suspect]
     Active Substance: TOCILIZUMAB
     Indication: RHEUMATOID ARTHRITIS
     Route: 042
     Dates: start: 20101026, end: 20140918
  17. ACTEMRA [Suspect]
     Active Substance: TOCILIZUMAB
     Route: 042
     Dates: start: 20110309
  18. ACTEMRA [Suspect]
     Active Substance: TOCILIZUMAB
     Route: 042
     Dates: start: 20110601
  19. ACTEMRA [Suspect]
     Active Substance: TOCILIZUMAB
     Route: 042
     Dates: start: 20110629
  20. ACTEMRA [Suspect]
     Active Substance: TOCILIZUMAB
     Route: 042
     Dates: start: 20110727
  21. PANTOLOC [PANTOPRAZOLE] [Concomitant]
     Active Substance: PANTOPRAZOLE SODIUM

REACTIONS (36)
  - Tooth infection [Recovered/Resolved]
  - Foot deformity [Not Recovered/Not Resolved]
  - Gastroenteritis [Recovered/Resolved]
  - Nasopharyngitis [Not Recovered/Not Resolved]
  - Myalgia [Unknown]
  - Blood potassium decreased [Unknown]
  - Pyelonephritis [Unknown]
  - Vomiting [Unknown]
  - Medication error [Unknown]
  - Nausea [Unknown]
  - Cough [Recovered/Resolved]
  - Drug ineffective [Unknown]
  - Arthralgia [Not Recovered/Not Resolved]
  - Heart rate increased [Recovering/Resolving]
  - Mouth ulceration [Unknown]
  - Foot deformity [Unknown]
  - Dizziness [Unknown]
  - Headache [Recovered/Resolved]
  - Ingrowing nail [Recovered/Resolved]
  - Epistaxis [Unknown]
  - Nasal discharge discolouration [Recovered/Resolved]
  - Gastrointestinal viral infection [Recovering/Resolving]
  - Kidney infection [Unknown]
  - Abdominal pain upper [Unknown]
  - Back pain [Unknown]
  - Oedema [Unknown]
  - Infusion related reaction [Recovering/Resolving]
  - Bronchitis [Recovering/Resolving]
  - Localised infection [Not Recovered/Not Resolved]
  - Weight decreased [Unknown]
  - Diarrhoea [Unknown]
  - Pyrexia [Unknown]
  - Fatigue [Not Recovered/Not Resolved]
  - Procedural pain [Not Recovered/Not Resolved]
  - Headache [Unknown]
  - Vomiting [Unknown]

NARRATIVE: CASE EVENT DATE: 2013
